FAERS Safety Report 19441985 (Version 3)
Quarter: 2021Q3

REPORT INFORMATION
  Report Type: Report from Study
  Country: NL (occurrence: NL)
  Receive Date: 20210621
  Receipt Date: 20210730
  Transmission Date: 20211014
  Serious: Yes (Hospitalization)
  Sender: FDA-Public Use
  Company Number: NL-ROCHE-2850899

PATIENT
  Age: 65 Year
  Sex: Male
  Weight: 64.9 kg

DRUGS (15)
  1. OXYCODON [Concomitant]
     Active Substance: OXYCODONE
     Dates: start: 202003
  2. NATRIUMCHLORIDE [Concomitant]
     Active Substance: SODIUM CHLORIDE
     Indication: NEPHROPATHY TOXIC
     Dates: start: 20210615, end: 20210617
  3. PARACETAMOL [Concomitant]
     Active Substance: ACETAMINOPHEN
     Indication: PAIN
     Dates: start: 202003
  4. ZOMETA [Concomitant]
     Active Substance: ZOLEDRONIC ACID
     Dates: start: 20200907
  5. TOPICORTE [Concomitant]
     Active Substance: DESOXIMETASONE
     Indication: HAEMORRHOIDS
     Route: 061
     Dates: start: 20201215
  6. COVID?19 VACCINE [Concomitant]
     Dates: start: 20210528, end: 20210528
  7. PREGABALINE [Concomitant]
     Active Substance: PREGABALIN
     Indication: PAIN
     Dates: start: 20200916
  8. ACENOCOUMAROL [Concomitant]
     Active Substance: ACENOCOUMAROL
     Route: 047
     Dates: start: 20210409
  9. AUGMENTIN [Concomitant]
     Active Substance: AMOXICILLIN\CLAVULANATE POTASSIUM
     Dates: start: 20210611, end: 20210611
  10. PLACEBO [Suspect]
     Active Substance: UNSPECIFIED INGREDIENT
     Indication: NON-SMALL CELL LUNG CANCER
     Dosage: ON 27/MAY/2021, HE RECEIVED THE MOST RECENT DOSE OF BLINDED TIRAGOLUMAB PRIOR TO SERIOUS ADVERSE EVE
     Route: 042
     Dates: start: 20200925
  11. ATEZOLIZUMAB. [Suspect]
     Active Substance: ATEZOLIZUMAB
     Indication: NON-SMALL CELL LUNG CANCER
     Dosage: ON 27/MAY/2021, HE RECEIVED THE MOST RECENT DOSE OF ATEZOLIZUMAB (1200 MG) PRIOR TO SERIOUS ADVERSE
     Route: 042
     Dates: start: 20200925
  12. OMEPRAZOL [Concomitant]
     Active Substance: OMEPRAZOLE
     Dates: start: 2010
  13. OXYCODON [Concomitant]
     Active Substance: OXYCODONE
     Indication: PAIN
     Dates: start: 20200916
  14. NADROPARINE [Concomitant]
     Active Substance: NADROPARIN
     Route: 058
     Dates: start: 20210408
  15. LOPERAMIDE [Concomitant]
     Active Substance: LOPERAMIDE
     Indication: DIARRHOEA
     Dates: start: 2011

REACTIONS (1)
  - Hepatic failure [Recovered/Resolved]

NARRATIVE: CASE EVENT DATE: 20210614
